FAERS Safety Report 15132161 (Version 4)
Quarter: 2018Q3

REPORT INFORMATION
  Report Type: Report from Study
  Country: CO (occurrence: CO)
  Receive Date: 20180711
  Receipt Date: 20180723
  Transmission Date: 20181010
  Serious: Yes (Hospitalization)
  Sender: FDA-Public Use
  Company Number: PHHY2018CO036738

PATIENT
  Sex: Male

DRUGS (5)
  1. ENTRESTO [Suspect]
     Active Substance: SACUBITRIL\VALSARTAN
     Indication: CARDIAC FAILURE
     Dosage: 200 MG (SACUBITRIL 97 MG AND VALSARTAN 103 MG), Q12H
     Route: 048
     Dates: start: 20170511
  2. ATORVASTATIN [Suspect]
     Active Substance: ATORVASTATIN
     Indication: PRODUCT USED FOR UNKNOWN INDICATION
     Dosage: UNK
     Route: 065
  3. FUROSEMIDE. [Concomitant]
     Active Substance: FUROSEMIDE
     Indication: PRODUCT USED FOR UNKNOWN INDICATION
     Dosage: UNK
     Route: 065
  4. CORYOL [Suspect]
     Active Substance: CARVEDILOL
     Indication: PRODUCT USED FOR UNKNOWN INDICATION
     Dosage: UNK
     Route: 065
  5. LANITOP [Concomitant]
     Active Substance: METILDIGOXIN
     Indication: PRODUCT USED FOR UNKNOWN INDICATION
     Dosage: UNK
     Route: 065

REACTIONS (6)
  - Choking [Unknown]
  - Cough [Not Recovered/Not Resolved]
  - Malaise [Not Recovered/Not Resolved]
  - Cardiac failure [Unknown]
  - Pyrexia [Not Recovered/Not Resolved]
  - Dyspnoea [Not Recovered/Not Resolved]
